FAERS Safety Report 12405524 (Version 1)
Quarter: 2016Q2

REPORT INFORMATION
  Report Type: Spontaneous
  Country: US (occurrence: None)
  Receive Date: 20160525
  Receipt Date: 20160525
  Transmission Date: 20160815
  Serious: Yes (Life-Threatening, Disabling, Other)
  Sender: FDA-Public Use
  Company Number: None

PATIENT
  Age: 79 Year
  Sex: Female
  Weight: 65.77 kg

DRUGS (5)
  1. BRINTELLIX [Suspect]
     Active Substance: VORTIOXETINE HYDROBROMIDE
     Indication: POST-TRAUMATIC STRESS DISORDER
     Dosage: 1 TABLET(S) IN THE MORNING TAKEN BY MOUTH
     Route: 048
     Dates: start: 20160313, end: 20160517
  2. GABAPENTIN. [Concomitant]
     Active Substance: GABAPENTIN
  3. LISINOPRIL. [Concomitant]
     Active Substance: LISINOPRIL
  4. DIGESTIVE ENZYMES [Concomitant]
     Active Substance: UNSPECIFIED INGREDIENT
  5. MELATONIN [Concomitant]
     Active Substance: MELATONIN

REACTIONS (17)
  - Insomnia [None]
  - Depression [None]
  - Blood pressure increased [None]
  - Pyrexia [None]
  - Skin exfoliation [None]
  - Agitation [None]
  - Hypophagia [None]
  - Anxiety [None]
  - Weight decreased [None]
  - Nausea [None]
  - Mood swings [None]
  - Vomiting [None]
  - Rhinorrhoea [None]
  - Drug withdrawal syndrome [None]
  - Dry skin [None]
  - Logorrhoea [None]
  - Dizziness [None]
